FAERS Safety Report 6985671-8 (Version None)
Quarter: 2010Q3

REPORT INFORMATION
  Report Type: 
  Country: None (occurrence: None)
  Receive Date: 20100915
  Receipt Date: 20100907
  Transmission Date: 20110219
  Serious: Yes (Life-Threatening, Hospitalization, Other)
  Sender: FDA-Public Use
  Company Number: FRWYE903112AUG05

PATIENT
  Age: 54 Year
  Sex: Female

DRUGS (4)
  1. EFFEXOR [Suspect]
     Indication: BIPOLAR I DISORDER
     Route: 048
     Dates: start: 20050315, end: 20050320
  2. EFFEXOR [Suspect]
     Route: 048
     Dates: start: 20050101, end: 20050415
  3. ASPIRIN [Suspect]
     Indication: HEADACHE
     Route: 048
     Dates: start: 20050320, end: 20050415
  4. ASPIRIN [Suspect]
     Indication: ABDOMINAL PAIN

REACTIONS (6)
  - APHASIA [None]
  - CEREBRAL HAEMATOMA [None]
  - HEMIANOPIA [None]
  - PERITONEAL HAEMORRHAGE [None]
  - PLATELET AGGREGATION ABNORMAL [None]
  - VISUAL FIELD DEFECT [None]
